FAERS Safety Report 24785296 (Version 2)
Quarter: 2025Q1

REPORT INFORMATION
  Report Type: Spontaneous
  Country: JP (occurrence: JP)
  Receive Date: 20241228
  Receipt Date: 20250107
  Transmission Date: 20250408
  Serious: Yes (Other)
  Sender: ACCORD
  Company Number: JP-JNJFOC-20230550391

PATIENT
  Age: 8 Year
  Sex: Male
  Weight: 26 kg

DRUGS (3)
  1. METHYLPHENIDATE HYDROCHLORIDE [Interacting]
     Active Substance: METHYLPHENIDATE HYDROCHLORIDE
     Indication: Tic
     Dosage: EXTENDED-RELEASE, DOSE ESCALATION, TAKEN IN THE MORNING ONLY
     Route: 048
  2. RISPERIDONE [Interacting]
     Active Substance: RISPERIDONE
     Indication: Attention deficit hyperactivity disorder
     Dosage: TAKEN IN THE EVENING ONLY
     Route: 048
  3. GUANFACINE HYDROCHLORIDE [Concomitant]
     Active Substance: GUANFACINE HYDROCHLORIDE
     Dosage: UP-TITRATED, EXTENDED-RELEASE
     Route: 048

REACTIONS (2)
  - Oromandibular dystonia [Recovered/Resolved]
  - Drug interaction [Recovered/Resolved]
